FAERS Safety Report 6200859-1 (Version None)
Quarter: 2009Q2

REPORT INFORMATION
  Report Type: 
  Country: None (occurrence: None)
  Receive Date: 20090523
  Receipt Date: 20081010
  Transmission Date: 20091009
  Serious: No
  Sender: FDA-Public Use
  Company Number: US-ALEXION-A200800017

PATIENT
  Sex: Female

DRUGS (6)
  1. SOLIRIS [Suspect]
     Indication: PAROXYSMAL NOCTURNAL HAEMOGLOBINURIA
     Dosage: 600 MG, QW
     Route: 042
     Dates: start: 20080212, end: 20080304
  2. SOLIRIS [Suspect]
     Dosage: 900 MG, Q2W
     Route: 042
     Dates: start: 20080311, end: 20080923
  3. FOLIC ACID [Concomitant]
     Dosage: UNK, QD
     Route: 048
  4. IRON [Concomitant]
     Dosage: UNK, QD
     Route: 048
  5. PROTONIX  /01263201/ [Concomitant]
     Dosage: UNK, QD
     Route: 048
  6. ASPIRIN [Concomitant]
     Dosage: UNK, QD
     Route: 048

REACTIONS (8)
  - BLOOD PRESSURE DECREASED [None]
  - DECREASED APPETITE [None]
  - DIZZINESS [None]
  - FEELING COLD [None]
  - HEADACHE [None]
  - MUCOSAL INFLAMMATION [None]
  - OESOPHAGEAL SPASM [None]
  - POSTNASAL DRIP [None]
